FAERS Safety Report 6687524-1 (Version None)
Quarter: 2010Q2

REPORT INFORMATION
  Report Type: 
  Country: None (occurrence: None)
  Receive Date: 20100419
  Receipt Date: 20090831
  Transmission Date: 20101027
  Serious: No
  Sender: FDA-Public Use
  Company Number: US-ABBOTT-09P-163-0595108-00

PATIENT
  Sex: Female
  Weight: 38.59 kg

DRUGS (3)
  1. LUPRON DEPOT-PED [Suspect]
     Indication: PRECOCIOUS PUBERTY
     Dates: start: 20060101
  2. LUPRON DEPOT-PED [Suspect]
     Dates: start: 20090101
  3. LUPRON DEPOT-PED [Suspect]
     Dates: start: 20090701

REACTIONS (3)
  - INJECTION SITE PAIN [None]
  - PRECOCIOUS PUBERTY [None]
  - WEIGHT INCREASED [None]
